FAERS Safety Report 9511083 (Version 1)
Quarter: 2013Q3

REPORT INFORMATION
  Report Type: Spontaneous
  Country: US (occurrence: None)
  Receive Date: 20130909
  Receipt Date: 20130909
  Transmission Date: 20140515
  Serious: Yes (Hospitalization)
  Sender: FDA-Public Use
  Company Number: None

PATIENT
  Age: 64 Year
  Sex: Male
  Weight: 82.2 kg

DRUGS (2)
  1. PACLITAXEL POLIGLUMEX [Suspect]
     Indication: GLIOBLASTOMA
     Dosage: PPX  96MG
     Dates: start: 20130507, end: 20130611
  2. TEMOZOLOMIDE [Suspect]
     Dosage: TMZ 285MG   +  390MG?7/15-7/19  +  8/9-8/13/13
     Dates: start: 20130715, end: 20130719

REACTIONS (2)
  - Convulsion [None]
  - Radiation necrosis [None]
